FAERS Safety Report 15029766 (Version 1)
Quarter: 2018Q2

REPORT INFORMATION
  Report Type: Spontaneous
  Country: US (occurrence: US)
  Receive Date: 20180619
  Receipt Date: 20180619
  Transmission Date: 20180711
  Serious: No
  Sender: FDA-Public Use
  Company Number: US-GALDERMA-US18011524

PATIENT
  Age: 19 Year
  Sex: Female

DRUGS (7)
  1. PROACTIV REPAIRING TREATMENT [Concomitant]
     Active Substance: BENZOYL PEROXIDE
     Indication: RASH PAPULAR
     Route: 061
     Dates: start: 20180113, end: 20180203
  2. PROACTIV RENEWING CLEANSER [Concomitant]
     Active Substance: BENZOYL PEROXIDE
     Indication: RASH PAPULAR
     Route: 061
     Dates: start: 20180113, end: 20180203
  3. PROACTIV MD DEEP CLEANSING FACE WASH [Concomitant]
     Active Substance: COSMETICS
     Indication: RASH PAPULAR
     Route: 061
     Dates: end: 20180203
  4. PROACTIV REVITALIZING TONER [Concomitant]
     Indication: RASH PAPULAR
     Route: 061
     Dates: start: 20180113, end: 20180203
  5. PROACTIV MD ADAPALENE ACNE TREATMENT [Suspect]
     Active Substance: ADAPALENE
     Indication: RASH PAPULAR
     Dosage: 0.1%
     Route: 061
     Dates: end: 20180203
  6. PROACTIV EMERGENCY BLEMISH RELIEF [Concomitant]
     Active Substance: BENZOYL PEROXIDE
     Indication: RASH PAPULAR
     Route: 061
     Dates: start: 20180113, end: 20180203
  7. PROACTIV DEEP CLEANSING WASH [Concomitant]
     Active Substance: SALICYLIC ACID
     Indication: RASH PAPULAR
     Route: 061
     Dates: start: 20180113, end: 20180203

REACTIONS (6)
  - Pain of skin [Recovered/Resolved]
  - Product use in unapproved indication [Recovered/Resolved]
  - Skin exfoliation [Recovered/Resolved]
  - Rash papular [Recovered/Resolved]
  - Erythema [Recovered/Resolved]
  - Pruritus [Recovered/Resolved]

NARRATIVE: CASE EVENT DATE: 2018
